FAERS Safety Report 12343072 (Version 1)
Quarter: 2016Q2

REPORT INFORMATION
  Report Type: Spontaneous
  Country: US (occurrence: US)
  Receive Date: 20160506
  Receipt Date: 20160506
  Transmission Date: 20160815
  Serious: Yes (Other)
  Sender: FDA-Public Use
  Company Number: US-MYLANLABS-2016M1010143

PATIENT

DRUGS (1)
  1. FONDAPARINUX [Suspect]
     Active Substance: FONDAPARINUX
     Dosage: UNK
     Route: 064

REACTIONS (2)
  - Haemorrhagic diathesis [Recovered/Resolved]
  - Foetal exposure during pregnancy [Recovered/Resolved]

NARRATIVE: CASE EVENT DATE: 2015
